FAERS Safety Report 17792663 (Version 1)
Quarter: 2020Q2

REPORT INFORMATION
  Report Type: Spontaneous
  Country: ES (occurrence: ES)
  Receive Date: 20200515
  Receipt Date: 20200515
  Transmission Date: 20200714
  Serious: Yes (Other)
  Sender: FDA-Public Use
  Company Number: ES-TEVA-2020-ES-1233509

PATIENT
  Age: 35 Year
  Sex: Male

DRUGS (8)
  1. RAPAMUNE [Concomitant]
     Active Substance: SIROLIMUS
     Indication: RENAL TRANSPLANT
     Dosage: 1 MG
     Route: 048
     Dates: end: 20200326
  2. RAPAMUNE [Concomitant]
     Active Substance: SIROLIMUS
     Dates: start: 20200327, end: 20200330
  3. ENOXAPARINA (2482A) [Concomitant]
     Active Substance: ENOXAPARIN
     Indication: THROMBOSIS PROPHYLAXIS
     Dosage: 40 MG DAY
     Route: 058
     Dates: start: 20200402, end: 20200419
  4. HIDROXICLOROQUINA (2143A) [Suspect]
     Active Substance: HYDROXYCHLOROQUINE
     Indication: CORONAVIRUS INFECTION
     Dosage: 400 MG DAY
     Route: 048
     Dates: start: 20200325, end: 20200401
  5. AZITROMICINA (7019A) [Suspect]
     Active Substance: AZITHROMYCIN
     Indication: CORONAVIRUS INFECTION
     Dosage: 500 MG DAY
     Route: 048
     Dates: start: 20200325, end: 20200329
  6. DEFLAZACORT (2546A) [Concomitant]
     Route: 048
     Dates: start: 20200326, end: 20200329
  7. DEFLAZACORT (2546A) [Concomitant]
     Indication: RENAL TRANSPLANT
     Dosage: 6 MG
     Route: 048
     Dates: end: 20200325
  8. DEFLAZACORT (2546A) [Concomitant]
     Dates: start: 20200330

REACTIONS (1)
  - Hepatitis [Recovered/Resolved]

NARRATIVE: CASE EVENT DATE: 20200407
